FAERS Safety Report 5973887-9 (Version None)
Quarter: 2008Q4

REPORT INFORMATION
  Report Type: 
  Country: None (occurrence: None)
  Receive Date: 20081201
  Receipt Date: 20081120
  Transmission Date: 20090506
  Serious: Yes (Other)
  Sender: FDA-Public Use
  Company Number: US-AMGEN-QUU320046

PATIENT
  Sex: Female

DRUGS (7)
  1. NEULASTA [Suspect]
     Indication: CHEMOTHERAPY
  2. VALIUM [Concomitant]
  3. DILAUDID [Concomitant]
  4. ATIVAN [Concomitant]
  5. ZANTAC [Concomitant]
  6. CLADRIBINE [Concomitant]
  7. CYTARABINE [Concomitant]

REACTIONS (4)
  - BACTERIA SPUTUM IDENTIFIED [None]
  - HAEMOPTYSIS [None]
  - LANGERHANS' CELL GRANULOMATOSIS [None]
  - PAIN [None]
